FAERS Safety Report 19441019 (Version 3)
Quarter: 2021Q3

REPORT INFORMATION
  Report Type: Spontaneous
  Country: FR (occurrence: FR)
  Receive Date: 20210621
  Receipt Date: 20210714
  Transmission Date: 20211014
  Serious: Yes (Death, Hospitalization, Other)
  Sender: FDA-Public Use
  Company Number: FR-ALXN-A202102313

PATIENT
  Age: 72 Year
  Sex: Male
  Weight: 92 kg

DRUGS (3)
  1. SOLIRIS [Suspect]
     Active Substance: ECULIZUMAB
     Indication: COLD TYPE HAEMOLYTIC ANAEMIA
  2. SOLIRIS [Suspect]
     Active Substance: ECULIZUMAB
     Indication: WALDENSTROM^S MACROGLOBULINAEMIA
     Dosage: 900 MG, SINGLE
     Route: 065
     Dates: start: 20210216, end: 20210216
  3. SOLIRIS [Suspect]
     Active Substance: ECULIZUMAB
     Indication: OFF LABEL USE

REACTIONS (8)
  - Haemodynamic instability [Not Recovered/Not Resolved]
  - Quadriparesis [Unknown]
  - Multiple organ dysfunction syndrome [Unknown]
  - Off label use [Unknown]
  - Haemolysis [Fatal]
  - Renal failure [Not Recovered/Not Resolved]
  - Pneumonia [Unknown]
  - Malnutrition [Not Recovered/Not Resolved]

NARRATIVE: CASE EVENT DATE: 20210216
